FAERS Safety Report 4531380-4 (Version None)
Quarter: 2004Q4

REPORT INFORMATION
  Report Type: 
  Country: None (occurrence: None)
  Receive Date: 20041216
  Receipt Date: 20041130
  Transmission Date: 20050328
  Serious: Yes (Hospitalization)
  Sender: FDA-Public Use
  Company Number: USA041081215

PATIENT
  Age: 14 Year
  Sex: Female

DRUGS (3)
  1. HUMATROPE [Suspect]
     Indication: GROWTH HORMONE DEFICIENCY
     Dates: start: 20041015
  2. DDAVP (DESMOPRESSIN ACETATE) [Concomitant]
  3. HYDROCODONE [Concomitant]

REACTIONS (1)
  - NO ADVERSE DRUG EFFECT [None]
